FAERS Safety Report 5657726-1 (Version None)
Quarter: 2008Q1

REPORT INFORMATION
  Report Type: 
  Country: None (occurrence: None)
  Receive Date: 20080310
  Receipt Date: 20080304
  Transmission Date: 20080703
  Serious: Yes (Other)
  Sender: FDA-Public Use
  Company Number: BW-BOEHRINGER INGELHEIM GMBH, GERMANY-2007-BP-00878BP

PATIENT
  Age: 41 Year
  Sex: Female

DRUGS (5)
  1. VIRAMUNE [Suspect]
     Indication: HIV INFECTION
     Dates: start: 20041217, end: 20050104
  2. VIRAMUNE [Suspect]
     Dates: start: 20050104, end: 20050223
  3. SUSTIVA [Suspect]
     Indication: HIV INFECTION
     Dates: start: 20040507, end: 20041217
  4. SUSTIVA [Suspect]
     Dates: start: 20050223
  5. COMBIVIR [Suspect]
     Indication: HIV INFECTION
     Dates: start: 20040507

REACTIONS (1)
  - ABORTION SPONTANEOUS [None]
